FAERS Safety Report 14797588 (Version 1)
Quarter: 2018Q2

REPORT INFORMATION
  Report Type: Report from Study
  Country: JP (occurrence: JP)
  Receive Date: 20180424
  Receipt Date: 20180424
  Transmission Date: 20180711
  Serious: Yes (Other)
  Sender: FDA-Public Use
  Company Number: JP-ROCHE-1921022

PATIENT
  Age: 58 Year

DRUGS (15)
  1. BEVACIZUMAB. [Suspect]
     Active Substance: BEVACIZUMAB
     Indication: GLIOBLASTOMA
     Dosage: MOST RECENT DOSE ON: 05/SEP/2017
     Route: 041
     Dates: start: 20170124
  2. TEMODAL [Suspect]
     Active Substance: TEMOZOLOMIDE
     Indication: GLIOBLASTOMA
     Route: 048
     Dates: start: 20170111, end: 20170115
  3. TEMODAL [Suspect]
     Active Substance: TEMOZOLOMIDE
     Route: 048
     Dates: start: 20170503, end: 20170507
  4. TEMODAL [Suspect]
     Active Substance: TEMOZOLOMIDE
     Dosage: MOST RECENT DOSE: 27/AUG/2017.
     Route: 048
     Dates: start: 20170823
  5. TEMODAL [Suspect]
     Active Substance: TEMOZOLOMIDE
     Indication: GLIOBLASTOMA
     Route: 048
     Dates: start: 20161111, end: 20161115
  6. TEMODAL [Suspect]
     Active Substance: TEMOZOLOMIDE
     Indication: GLIOBLASTOMA
     Route: 048
     Dates: start: 20170208, end: 20170212
  7. TEMODAL [Suspect]
     Active Substance: TEMOZOLOMIDE
     Route: 048
     Dates: start: 20170308, end: 20170312
  8. BEVACIZUMAB. [Suspect]
     Active Substance: BEVACIZUMAB
     Indication: GLIOBLASTOMA
     Route: 041
     Dates: start: 20161101, end: 20161115
  9. BEVACIZUMAB. [Suspect]
     Active Substance: BEVACIZUMAB
     Indication: GLIOBLASTOMA
     Route: 041
     Dates: start: 20170110, end: 20170110
  10. TEMODAL [Suspect]
     Active Substance: TEMOZOLOMIDE
     Route: 048
     Dates: start: 20170405, end: 20170409
  11. TEMODAL [Suspect]
     Active Substance: TEMOZOLOMIDE
     Route: 048
     Dates: start: 20170531, end: 20170604
  12. TEMODAL [Suspect]
     Active Substance: TEMOZOLOMIDE
     Route: 048
     Dates: start: 20170628, end: 20170702
  13. TEMODAL [Suspect]
     Active Substance: TEMOZOLOMIDE
     Route: 048
     Dates: start: 20170728, end: 20170730
  14. BEVACIZUMAB. [Suspect]
     Active Substance: BEVACIZUMAB
     Indication: GLIOBLASTOMA
     Route: 041
     Dates: start: 20161129, end: 20161129
  15. TEMODAL [Suspect]
     Active Substance: TEMOZOLOMIDE
     Indication: GLIOBLASTOMA
     Route: 048
     Dates: start: 20161011, end: 20161104

REACTIONS (4)
  - Neutrophil count decreased [Recovered/Resolved]
  - Seizure [Recovered/Resolved]
  - Lymphocyte count decreased [Recovered/Resolved]
  - White blood cell count decreased [Recovered/Resolved]

NARRATIVE: CASE EVENT DATE: 20161104
